FAERS Safety Report 12340293 (Version 1)
Quarter: 2016Q2

REPORT INFORMATION
  Report Type: Spontaneous
  Country: US (occurrence: None)
  Receive Date: 20160505
  Receipt Date: 20160505
  Transmission Date: 20160815
  Serious: No
  Sender: FDA-Public Use
  Company Number: None

PATIENT
  Age: 46 Year
  Sex: Female
  Weight: 56.7 kg

DRUGS (5)
  1. MULTIVITAMIN [Concomitant]
     Active Substance: VITAMINS
  2. VIMOVO [Suspect]
     Active Substance: ESOMEPRAZOLE MAGNESIUM\NAPROXEN
     Indication: ANTIINFLAMMATORY THERAPY
     Dates: start: 20160120, end: 20160128
  3. VITAMIN C [Concomitant]
     Active Substance: ASCORBIC ACID
  4. OMEGA-3 FATTY ACID [Concomitant]
     Active Substance: OMEGA-3 FATTY ACIDS
  5. CERTIRIZINE (ANTIHISTAMINE) [Concomitant]

REACTIONS (9)
  - Flushing [None]
  - Anxiety [None]
  - Nausea [None]
  - Blood pressure increased [None]
  - Tachycardia [None]
  - Terminal insomnia [None]
  - Abdominal pain upper [None]
  - Sleep disorder [None]
  - Feeling abnormal [None]

NARRATIVE: CASE EVENT DATE: 20160120
